FAERS Safety Report 13109810 (Version 1)
Quarter: 2017Q1

REPORT INFORMATION
  Report Type: Spontaneous
  Country: US (occurrence: US)
  Receive Date: 20170112
  Receipt Date: 20170112
  Transmission Date: 20170428
  Serious: No
  Sender: FDA-Public Use
  Company Number: US-ROCHE-1100460

PATIENT
  Age: 50 Year
  Sex: Female

DRUGS (5)
  1. LIDOCAINE. [Concomitant]
     Active Substance: LIDOCAINE
     Dosage: GTT
     Route: 065
  2. ACTIVASE [Suspect]
     Active Substance: ALTEPLASE
     Indication: ACUTE MYOCARDIAL INFARCTION
     Dosage: 54 CC/HOUR AT 54 GTTS PER MIN
     Route: 065
  3. MORPHINE SULFATE. [Concomitant]
     Active Substance: MORPHINE SULFATE
     Dosage: IVP
     Route: 065
  4. NITRO S.L. [Concomitant]
  5. HEPARIN [Concomitant]
     Active Substance: HEPARIN SODIUM
     Dosage: 7500 GTT BOLUS
     Route: 065

REACTIONS (2)
  - Paraesthesia [Unknown]
  - Hypoaesthesia [Unknown]
